FAERS Safety Report 6125488-X (Version None)
Quarter: 2009Q1

REPORT INFORMATION
  Report Type: 
  Country: None (occurrence: None)
  Receive Date: 20090319
  Receipt Date: 20090319
  Transmission Date: 20090719
  Serious: Yes (Life-Threatening, Disabling)
  Sender: FDA-Public Use
  Company Number: None

PATIENT
  Age: 87 Year
  Sex: Male

DRUGS (1)
  1. MIDAZOLAM HCL [Suspect]
     Indication: INDUCTION OF ANAESTHESIA
     Dosage: 3 MG IV
     Route: 042
     Dates: start: 20081212, end: 20081212

REACTIONS (3)
  - CARDIO-RESPIRATORY ARREST [None]
  - PLEURAL EFFUSION [None]
  - PROCEDURAL COMPLICATION [None]
